FAERS Safety Report 5002972-3 (Version None)
Quarter: 2006Q2

REPORT INFORMATION
  Report Type: 
  Country: None (occurrence: None)
  Receive Date: 20060516
  Receipt Date: 20051004
  Transmission Date: 20061013
  Serious: Yes (Hospitalization, Other)
  Sender: FDA-Public Use
  Company Number: US-MERCK-0510USA03313

PATIENT
  Age: 72 Year
  Sex: Female
  Weight: 64 kg

DRUGS (9)
  1. VIOXX [Suspect]
     Indication: ARTHRITIS
     Route: 048
     Dates: start: 19990917
  2. VIOXX [Suspect]
     Route: 065
     Dates: start: 20000819
  3. WARFARIN [Concomitant]
     Route: 065
  4. LASIX [Concomitant]
     Route: 065
  5. VERAPAMIL [Concomitant]
     Route: 065
  6. DIGOXIN [Concomitant]
     Route: 065
  7. LIPITOR [Concomitant]
     Route: 065
  8. LISINOPRIL [Concomitant]
     Route: 065
  9. SYNTHROID [Concomitant]
     Route: 065

REACTIONS (13)
  - ADVERSE EVENT [None]
  - ATRIAL FIBRILLATION [None]
  - CARDIAC FAILURE [None]
  - CARDIAC FAILURE CONGESTIVE [None]
  - HYPERTENSION [None]
  - INFLUENZA [None]
  - MUSCULOSKELETAL CHEST PAIN [None]
  - MYOCARDIAL INFARCTION [None]
  - OSTEOARTHRITIS [None]
  - SICK SINUS SYNDROME [None]
  - SINUSITIS [None]
  - SKIN LESION [None]
  - ULCER [None]
